FAERS Safety Report 9052254 (Version 3)
Quarter: 2013Q2

REPORT INFORMATION
  Report Type: Spontaneous
  Country: DE (occurrence: DE)
  Receive Date: 20130206
  Receipt Date: 20130409
  Transmission Date: 20140414
  Serious: Yes (Death)
  Sender: FDA-Public Use
  Company Number: PHHY2013DE010931

PATIENT
  Sex: Male
  Weight: 3.4 kg

DRUGS (1)
  1. RITALIN LA [Suspect]
     Indication: ATTENTION DEFICIT/HYPERACTIVITY DISORDER
     Dosage: MOTHER DOSE: 40 MG, DAILY
     Route: 064

REACTIONS (3)
  - Sudden infant death syndrome [Fatal]
  - Coarctation of the aorta [Fatal]
  - Foetal exposure during pregnancy [Unknown]
